FAERS Safety Report 6245021-1 (Version None)
Quarter: 2009Q2

REPORT INFORMATION
  Report Type: 
  Country: None (occurrence: None)
  Receive Date: 20090623
  Receipt Date: 20090623
  Transmission Date: 20091009
  Serious: Yes (Hospitalization, Disabling, Other)
  Sender: FDA-Public Use
  Company Number: None

PATIENT
  Age: 50 Year
  Sex: Female
  Weight: 147.419 kg

DRUGS (1)
  1. LEVAQUIN [Suspect]
     Indication: HELICOBACTER INFECTION
     Dosage: 500MG ONCE DAILY PO
     Route: 048
     Dates: start: 20090502, end: 20090511

REACTIONS (2)
  - CHEST PAIN [None]
  - MUSCULOSKELETAL CHEST PAIN [None]
